FAERS Safety Report 4353466-X (Version None)
Quarter: 2004Q2

REPORT INFORMATION
  Report Type: 
  Country: None (occurrence: None)
  Receive Date: 20040430
  Receipt Date: 20040420
  Transmission Date: 20050107
  Serious: Yes (Hospitalization, Other)
  Sender: FDA-Public Use
  Company Number: US-JNJFOC-20040302498

PATIENT
  Age: 44 Year
  Sex: Male
  Weight: 74.3899 kg

DRUGS (3)
  1. REMICADE [Suspect]
     Indication: RHEUMATOID ARTHRITIS
     Dosage: 400 MG, 1 IN 6 WEEK, INTRAVENOUS : 400 MG INTRAVENOUS
     Route: 042
     Dates: start: 20031014
  2. REMICADE [Suspect]
     Indication: RHEUMATOID ARTHRITIS
     Dosage: 400 MG, 1 IN 6 WEEK, INTRAVENOUS : 400 MG INTRAVENOUS
     Route: 042
     Dates: start: 20040115
  3. HYDROCODONE [Concomitant]

REACTIONS (7)
  - ABDOMINAL DISTENSION [None]
  - BRONCHITIS [None]
  - HERNIA [None]
  - MYCOBACTERIAL INFECTION [None]
  - PLEURAL EFFUSION [None]
  - PLEURAL FIBROSIS [None]
  - PULMONARY TUBERCULOSIS [None]
